FAERS Safety Report 6720033-X (Version None)
Quarter: 2010Q2

REPORT INFORMATION
  Report Type: 
  Country: None (occurrence: None)
  Receive Date: 20100511
  Receipt Date: 20100426
  Transmission Date: 20101027
  Serious: Yes (Hospitalization)
  Sender: FDA-Public Use
  Company Number: IT-GENENTECH-298435

PATIENT
  Sex: Male

DRUGS (2)
  1. LUCENTIS [Suspect]
     Indication: MACULOPATHY
     Dosage: 0.05 ML, 1/WEEK
     Route: 031
     Dates: start: 20090504, end: 20090612
  2. LUCENTIS [Suspect]
     Dosage: 0.05 ML, 1/WEEK
     Route: 031
     Dates: start: 20090612

REACTIONS (1)
  - CEREBROVASCULAR ACCIDENT [None]
